FAERS Safety Report 6381408 (Version 6)
Quarter: 2020Q3

REPORT INFORMATION
  Report Type: Spontaneous
  Country: CZ (occurrence: CZ)
  Receive Date: 20070813
  Receipt Date: 20071005
  Transmission Date: 20201105
  Serious: Yes (Death, Hospitalization)
  Sender: FDA-Public Use
  Company Number: CZ-ROCHE-510429

PATIENT
  Age: 53 Year
  Sex: Male
  Weight: 61 kg

DRUGS (3)
  1. INTRON A [Concomitant]
     Active Substance: INTERFERON ALFA-2B
     Route: 058
     Dates: start: 200511, end: 200707
  2. IBANDRONIC ACID. [Suspect]
     Active Substance: IBANDRONIC ACID
     Indication: PROPHYLAXIS
     Dosage: 6 MG EVERY 3?4 WEEKS
     Route: 042
     Dates: start: 20060626, end: 20070627
  3. ZOMETA [Concomitant]
     Active Substance: ZOLEDRONIC ACID
     Indication: PROPHYLAXIS
     Dates: start: 200508, end: 200606

REACTIONS (2)
  - Infection [Fatal]
  - Osteonecrosis [Not Recovered/Not Resolved]

NARRATIVE: CASE EVENT DATE: 20070715
